FAERS Safety Report 22919374 (Version 3)
Quarter: 2024Q4

REPORT INFORMATION
  Report Type: Spontaneous
  Country: DE (occurrence: DE)
  Receive Date: 20230908
  Receipt Date: 20241008
  Transmission Date: 20250115
  Serious: Yes (Hospitalization)
  Sender: SANDOZ
  Company Number: DE-SANDOZ-SDZ2023DE022747

PATIENT
  Age: 77 Year
  Sex: Female

DRUGS (6)
  1. AZOPT [Suspect]
     Active Substance: BRINZOLAMIDE
     Dosage: UNK UNK, BID
     Route: 047
     Dates: start: 2015
  2. AZOPT [Suspect]
     Active Substance: BRINZOLAMIDE
     Indication: Product used for unknown indication
     Dosage: UNK, BID
     Route: 047
  3. TIMOLOL MALEATE\TRAVOPROST [Suspect]
     Active Substance: TIMOLOL MALEATE\TRAVOPROST
     Dosage: 1 DOSAGE FORM, QD
     Route: 047
     Dates: start: 2015
  4. TIMOLOL MALEATE\TRAVOPROST [Suspect]
     Active Substance: TIMOLOL MALEATE\TRAVOPROST
     Dosage: 2 DOSAGE FORM, QD
     Route: 047
     Dates: start: 2015
  5. TIMOLOL MALEATE\TRAVOPROST [Suspect]
     Active Substance: TIMOLOL MALEATE\TRAVOPROST
     Dosage: UNK UNK, QD
     Route: 047
     Dates: start: 2015
  6. TIMOLOL MALEATE\TRAVOPROST [Suspect]
     Active Substance: TIMOLOL MALEATE\TRAVOPROST
     Indication: Product used for unknown indication
     Dosage: UNK, QD
     Route: 047
     Dates: start: 2015

REACTIONS (5)
  - Foot fracture [Unknown]
  - Fall [Unknown]
  - Product availability issue [Unknown]
  - Product substitution issue [Unknown]
  - Disturbance in attention [Unknown]
